FAERS Safety Report 9557292 (Version 1)
Quarter: 2013Q3

REPORT INFORMATION
  Report Type: Report from Study
  Country: BR (occurrence: BR)
  Receive Date: 20130926
  Receipt Date: 20130926
  Transmission Date: 20140515
  Serious: Yes (Other)
  Sender: FDA-Public Use
  Company Number: PHHY2013BR107385

PATIENT
  Sex: Female
  Weight: 54 kg

DRUGS (5)
  1. ACLASTA [Suspect]
     Indication: OSTEOPOROSIS
     Dosage: 5 MG, UNK
     Route: 042
     Dates: start: 2013
  2. METFORMIN [Concomitant]
     Dosage: UNK UKN, UNK
     Dates: start: 2002
  3. LIPITOR [Concomitant]
     Dosage: UNK UKN, UNK
     Dates: start: 2002
  4. GALVUS [Concomitant]
     Dosage: UNK UKN, UNK
  5. GLIMEPIRIDE [Concomitant]
     Dosage: UNK UKN, UNK

REACTIONS (1)
  - Cerebrovascular accident [Recovering/Resolving]
